FAERS Safety Report 17181633 (Version 4)
Quarter: 2020Q1

REPORT INFORMATION
  Report Type: Spontaneous
  Country: US (occurrence: US)
  Receive Date: 20191220
  Receipt Date: 20200207
  Transmission Date: 20200409
  Serious: No
  Sender: FDA-Public Use
  Company Number: NVSC2019US067155

PATIENT
  Age: 79 Year
  Sex: Female

DRUGS (2)
  1. TIMOLOL MALEATE. [Suspect]
     Active Substance: TIMOLOL MALEATE
     Dosage: UNK
     Route: 047
     Dates: start: 201903
  2. TIMOLOL MALEATE. [Suspect]
     Active Substance: TIMOLOL MALEATE
     Indication: POSTOPERATIVE CARE
     Dosage: 1 GTT, QID
     Route: 047
     Dates: start: 201903, end: 20191108

REACTIONS (7)
  - Visual impairment [Recovered/Resolved]
  - Eye irritation [Not Recovered/Not Resolved]
  - Vision blurred [Recovered/Resolved]
  - Visual impairment [Unknown]
  - Vitreous floaters [Not Recovered/Not Resolved]
  - Drug ineffective [Unknown]
  - Product contamination [Unknown]

NARRATIVE: CASE EVENT DATE: 20191109
